FAERS Safety Report 14422608 (Version 3)
Quarter: 2018Q1

REPORT INFORMATION
  Report Type: Spontaneous
  Country: US (occurrence: US)
  Receive Date: 20180123
  Receipt Date: 20180316
  Transmission Date: 20180509
  Serious: Yes (Hospitalization, Other)
  Sender: FDA-Public Use
  Company Number: US-KITE, A GILEAD COMPANY-2040566

PATIENT
  Age: 54 Year
  Sex: Female
  Weight: 99.55 kg

DRUGS (34)
  1. YESCARTA [Suspect]
     Active Substance: AXICABTAGENE CILOLEUCEL
     Indication: DIFFUSE LARGE B-CELL LYMPHOMA REFRACTORY
     Route: 042
     Dates: start: 20180111, end: 20180111
  2. ZOVIRAX [Concomitant]
     Active Substance: ACYCLOVIR
     Dates: start: 20170108, end: 20180116
  3. FENTANYL. [Concomitant]
     Active Substance: FENTANYL
     Route: 042
     Dates: start: 20180113, end: 20180113
  4. AZTREONAM. [Concomitant]
     Active Substance: AZTREONAM
     Route: 042
     Dates: start: 20180113, end: 20180116
  5. ONDANSETRON [Concomitant]
     Active Substance: ONDANSETRON
     Route: 042
     Dates: start: 20180115, end: 20180115
  6. POTASSIUM CHLORIDE. [Concomitant]
     Active Substance: POTASSIUM CHLORIDE
     Route: 042
     Dates: start: 20180111, end: 20180116
  7. ROXICODONE [Concomitant]
     Active Substance: OXYCODONE HYDROCHLORIDE
     Dates: start: 20180112, end: 20180112
  8. MAGNESIUM SULFATE. [Concomitant]
     Active Substance: MAGNESIUM SULFATE
     Route: 042
     Dates: start: 20180115, end: 20180115
  9. SODIUM CHLORIDE. [Concomitant]
     Active Substance: SODIUM CHLORIDE
     Route: 042
     Dates: start: 20180108, end: 20180116
  10. INDERAL [Concomitant]
     Active Substance: PROPRANOLOL HYDROCHLORIDE
     Dates: start: 20180111, end: 20180111
  11. ONDANSETRON [Concomitant]
     Active Substance: ONDANSETRON
     Route: 042
     Dates: start: 20180115, end: 20180115
  12. VANCOMYCIN [Concomitant]
     Active Substance: VANCOMYCIN
     Dates: start: 20180113, end: 20180113
  13. VANCOMYCIN [Concomitant]
     Active Substance: VANCOMYCIN
     Dates: start: 20180114, end: 20180114
  14. ROXICODONE [Concomitant]
     Active Substance: OXYCODONE HYDROCHLORIDE
     Dates: start: 20180111, end: 20180111
  15. ACETAMINOPHEN. [Concomitant]
     Active Substance: ACETAMINOPHEN
     Dates: start: 20180111, end: 20180115
  16. ACETAMINOPHEN. [Concomitant]
     Active Substance: ACETAMINOPHEN
     Dates: start: 20180116, end: 20180116
  17. DILAUDID [Concomitant]
     Active Substance: HYDROMORPHONE HYDROCHLORIDE
     Dates: start: 20180112, end: 20180115
  18. PROZAC [Concomitant]
     Active Substance: FLUOXETINE HYDROCHLORIDE
     Dates: start: 20180108, end: 20180116
  19. HEPARIN [Concomitant]
     Active Substance: HEPARIN SODIUM
     Dates: start: 20180111
  20. TORADOL [Concomitant]
     Active Substance: KETOROLAC TROMETHAMINE
     Dates: start: 20180113, end: 20180114
  21. SYNTHROID [Concomitant]
     Active Substance: LEVOTHYROXINE SODIUM
     Dates: end: 20180116
  22. MIRALAX [Concomitant]
     Active Substance: POLYETHYLENE GLYCOL 3350
     Dates: start: 20180114, end: 20180114
  23. DILAUDID [Concomitant]
     Active Substance: HYDROMORPHONE HYDROCHLORIDE
     Dates: start: 20180115, end: 20180115
  24. FENTANYL. [Concomitant]
     Active Substance: FENTANYL
     Route: 042
     Dates: start: 20180113, end: 20180113
  25. KEPPRA [Concomitant]
     Active Substance: LEVETIRACETAM
     Dates: start: 20180108, end: 20180116
  26. VANCOMYCIN [Concomitant]
     Active Substance: VANCOMYCIN
     Dates: start: 20180115, end: 20180115
  27. FENTANYL. [Concomitant]
     Active Substance: FENTANYL
     Route: 042
     Dates: start: 20180113, end: 20180113
  28. LIDOCAINE. [Concomitant]
     Active Substance: LIDOCAINE
     Dates: start: 20180111, end: 20180116
  29. VANCOMYCIN [Concomitant]
     Active Substance: VANCOMYCIN
     Dates: start: 20180113, end: 20180113
  30. VANCOMYCIN [Concomitant]
     Active Substance: VANCOMYCIN
     Dates: start: 20180113, end: 20180113
  31. COLACE [Concomitant]
     Active Substance: DOCUSATE SODIUM
     Dates: start: 20180113, end: 20180113
  32. COLACE [Concomitant]
     Active Substance: DOCUSATE SODIUM
     Dates: start: 20180115, end: 20180115
  33. FILGRASTIM [Concomitant]
     Active Substance: FILGRASTIM
     Dates: start: 20180111, end: 20180116
  34. VANCOMYCIN [Concomitant]
     Active Substance: VANCOMYCIN
     Dates: start: 20180115, end: 20180116

REACTIONS (12)
  - Encephalopathy [Recovered/Resolved]
  - Back pain [Recovered/Resolved]
  - Vertebral lesion [Not Recovered/Not Resolved]
  - Abdominal pain [Recovered/Resolved]
  - Vomiting [Recovered/Resolved]
  - Neutropenia [Recovered/Resolved]
  - Infusion related reaction [Recovered/Resolved]
  - Cytokine release syndrome [Recovered/Resolved]
  - Nausea [Recovered/Resolved]
  - Hypotension [Unknown]
  - Tremor [Unknown]
  - C-reactive protein increased [Recovered/Resolved]

NARRATIVE: CASE EVENT DATE: 20180111
